FAERS Safety Report 11090557 (Version 2)
Quarter: 2015Q2

REPORT INFORMATION
  Report Type: Report from Study
  Country: BR (occurrence: BR)
  Receive Date: 20150505
  Receipt Date: 20150602
  Transmission Date: 20150821
  Serious: Yes (Other)
  Sender: FDA-Public Use
  Company Number: PHHY2015BR050183

PATIENT
  Sex: Female
  Weight: 80 kg

DRUGS (3)
  1. DIURIX [Concomitant]
     Indication: DIURETIC THERAPY
     Dosage: 1 DF, QD (START: 10 YEARS AGO)
     Route: 048
  2. LOSARTAN POTASSIUM. [Concomitant]
     Active Substance: LOSARTAN POTASSIUM
     Indication: HYPERTENSION
     Dosage: 2 DF, BID (START: 10 YEARS BEFORE)
     Route: 048
  3. ACLASTA [Suspect]
     Active Substance: ZOLEDRONIC ACID
     Indication: OSTEOPOROSIS
     Dosage: 5 MG, (1 AMPOULE PER YEAR)
     Route: 042
     Dates: start: 20150408

REACTIONS (3)
  - Memory impairment [Unknown]
  - Fibula fracture [Recovering/Resolving]
  - Lower limb fracture [Recovering/Resolving]
